FAERS Safety Report 13940412 (Version 1)
Quarter: 2017Q3

REPORT INFORMATION
  Report Type: Spontaneous
  Country: US (occurrence: US)
  Receive Date: 20170906
  Receipt Date: 20170906
  Transmission Date: 20171127
  Serious: Yes (Hospitalization)
  Sender: FDA-Public Use
  Company Number: US-HERON THERAPEUTICS, INC-HRTX-2017-000392

PATIENT
  Age: 66 Year
  Sex: Male

DRUGS (2)
  1. SUSTOL [Suspect]
     Active Substance: GRANISETRON
     Indication: PROPHYLAXIS OF NAUSEA AND VOMITING
     Dosage: 10 MG/0.4 ML, SINGLE
     Route: 058
     Dates: start: 20170426, end: 20170426
  2. R CHOP [Concomitant]
     Active Substance: CYCLOPHOSPHAMIDE\DOXORUBICIN\PREDNISONE\RITUXIMAB\VINCRISTINE
     Indication: LYMPHOMA

REACTIONS (2)
  - Injection site cellulitis [Recovered/Resolved]
  - Febrile neutropenia [Recovered/Resolved]

NARRATIVE: CASE EVENT DATE: 20170509
